FAERS Safety Report 11437499 (Version 1)
Quarter: 2015Q3

REPORT INFORMATION
  Report Type: Spontaneous
  Country: US (occurrence: US)
  Receive Date: 20150821
  Receipt Date: 20150821
  Transmission Date: 20151125
  Serious: No
  Sender: FDA-Public Use
  Company Number: US-ELI_LILLY_AND_COMPANY-US200705002242

PATIENT
  Age: 67 Year
  Sex: Female

DRUGS (5)
  1. HUMALOG MIX75/25 [Suspect]
     Active Substance: INSULIN LISPRO
     Indication: DIABETES MELLITUS
     Dates: start: 2001
  2. CYMBALTA [Suspect]
     Active Substance: DULOXETINE HYDROCHLORIDE
     Indication: DEPRESSION
     Dosage: 60 MG, UNKNOWN
     Dates: end: 2007
  3. LEVOTHYROXINE. [Concomitant]
     Active Substance: LEVOTHYROXINE
     Dosage: 100 UG, EACH MORNING
  4. XANAX [Concomitant]
     Active Substance: ALPRAZOLAM
     Indication: DEPRESSION
  5. ACTOS [Concomitant]
     Active Substance: PIOGLITAZONE HYDROCHLORIDE
     Dosage: 2 MG, UNKNOWN

REACTIONS (15)
  - Tinnitus [Unknown]
  - Chills [Unknown]
  - Cataract [Unknown]
  - Tremor [Unknown]
  - Irritability [Unknown]
  - Balance disorder [Unknown]
  - Eating disorder [Unknown]
  - Dysphagia [Unknown]
  - Depression [Unknown]
  - Muscular weakness [Unknown]
  - Vision blurred [Unknown]
  - Sleep disorder [Unknown]
  - Disturbance in attention [Unknown]
  - Hypoaesthesia oral [Unknown]
  - Pruritus [Unknown]

NARRATIVE: CASE EVENT DATE: 2007
